FAERS Safety Report 9666271 (Version 1)
Quarter: 2013Q4

REPORT INFORMATION
  Report Type: Spontaneous
  Country: US (occurrence: None)
  Receive Date: 20131031
  Receipt Date: 20131031
  Transmission Date: 20140711
  Serious: Yes (Other)
  Sender: FDA-Public Use
  Company Number: FK201304759

PATIENT
  Age: 13 Year
  Sex: Male

DRUGS (6)
  1. CLINDAMYCIN [Suspect]
     Indication: PRODUCT USED FOR UNKNOWN INDICATION
     Route: 042
  2. CEFEPIME [Suspect]
     Indication: ANTIBIOTIC THERAPY
     Route: 042
  3. AMOXICILLIN W/CLAVULANIC ACID (AMOXI-CLAVUL-ANICO) [Concomitant]
  4. GENTAMICIN (GENTAMICIN) [Concomitant]
  5. VANCOMYCIN (VANCOMYCIN) (VANCOMYCIN) [Suspect]
     Indication: PRODUCT USED FOR UNKNOWN INDICATION
     Route: 042
  6. ITRACONAZOLE (ITRACONAZOLE) [Concomitant]

REACTIONS (5)
  - Blood pressure increased [None]
  - Blastomycosis [None]
  - Haemodialysis [None]
  - Tubulointerstitial nephritis [None]
  - Nephropathy toxic [None]
